FAERS Safety Report 11433393 (Version 2)
Quarter: 2015Q3

REPORT INFORMATION
  Report Type: Spontaneous
  Country: US (occurrence: US)
  Receive Date: 20150830
  Receipt Date: 20150901
  Transmission Date: 20151125
  Serious: No
  Sender: FDA-Public Use
  Company Number: ALCN2015US005399

PATIENT
  Sex: Female

DRUGS (1)
  1. HYPOTEARS [Suspect]
     Active Substance: POLYETHYLENE GLYCOL 400\POLYVINYL ALCOHOL
     Indication: DRY EYE
     Dosage: 1 GTT, UNK
     Route: 047

REACTIONS (1)
  - Expired product administered [Not Recovered/Not Resolved]
